FAERS Safety Report 21646366 (Version 2)
Quarter: 2022Q4

REPORT INFORMATION
  Report Type: Report from Study
  Country: ES (occurrence: ES)
  Receive Date: 20221126
  Receipt Date: 20221203
  Transmission Date: 20230113
  Serious: Yes (Life-Threatening, Hospitalization)
  Sender: FDA-Public Use
  Company Number: ES-AMGEN-ESPCT2022202993

PATIENT
  Age: 57 Year
  Sex: Male
  Weight: 54 kg

DRUGS (10)
  1. PANITUMUMAB [Suspect]
     Active Substance: PANITUMUMAB
     Indication: Colorectal cancer metastatic
     Dosage: 402 MILLIGRAM, Q2WK
     Route: 040
     Dates: start: 20211228
  2. PANITUMUMAB [Suspect]
     Active Substance: PANITUMUMAB
     Dosage: 324 MILLIGRAM, Q2WK
     Route: 040
  3. OXALIPLATIN [Suspect]
     Active Substance: OXALIPLATIN
     Indication: Colorectal cancer metastatic
     Dosage: 154 MILLIGRAM, Q2WK
     Route: 040
     Dates: start: 20211228
  4. OXALIPLATIN [Suspect]
     Active Substance: OXALIPLATIN
     Dosage: 141 MILLIGRAM, Q2WK
     Route: 040
  5. LEUCOVORIN [Suspect]
     Active Substance: LEUCOVORIN
     Indication: Colorectal cancer metastatic
     Dosage: 700 MILLIGRAM, Q2WK
     Route: 040
     Dates: start: 20211228
  6. LEUCOVORIN [Suspect]
     Active Substance: LEUCOVORIN
     Dosage: 650 MILLIGRAM, Q2WK
     Route: 040
  7. FLUOROURACIL [Suspect]
     Active Substance: FLUOROURACIL
     Indication: Colorectal cancer metastatic
     Dosage: 4344 MILLIGRAM, Q2WK/ IV DRIP
     Route: 040
     Dates: start: 20211228
  8. FLUOROURACIL [Suspect]
     Active Substance: FLUOROURACIL
     Dosage: 3984 MILLIGRAM, Q2WK/ IV DRIP
     Route: 040
  9. FLUOROURACIL [Suspect]
     Active Substance: FLUOROURACIL
     Dosage: 724 MILLIGRAM, Q2WK/ BOLUS
     Route: 040
     Dates: start: 20211228
  10. FLUOROURACIL [Suspect]
     Active Substance: FLUOROURACIL
     Dosage: 664 MILLIGRAM, Q2WK / BOLUS
     Route: 040

REACTIONS (1)
  - Colitis [Recovered/Resolved]

NARRATIVE: CASE EVENT DATE: 20220721
